FAERS Safety Report 17459174 (Version 1)
Quarter: 2020Q1

REPORT INFORMATION
  Report Type: Spontaneous
  Country: US (occurrence: US)
  Receive Date: 20200225
  Receipt Date: 20200225
  Transmission Date: 20200409
  Serious: No
  Sender: FDA-Public Use
  Company Number: US-IGSA-SR10009565

PATIENT
  Age: 49 Year
  Sex: Male
  Weight: 84 kg

DRUGS (3)
  1. PROLASTIN-C LIQUID [Suspect]
     Active Substance: .ALPHA.1-PROTEINASE INHIBITOR HUMAN
     Indication: ALPHA-1 ANTI-TRYPSIN DEFICIENCY
     Dosage: 5045 MG, Q.WK.
     Route: 042
     Dates: start: 20191209
  2. VENTOLIN HFA [Concomitant]
     Active Substance: ALBUTEROL SULFATE
  3. VIAGRA [Concomitant]
     Active Substance: SILDENAFIL CITRATE

REACTIONS (5)
  - Urticaria [Recovering/Resolving]
  - Swollen tongue [Recovering/Resolving]
  - Pruritus [Recovering/Resolving]
  - Throat irritation [Recovering/Resolving]
  - Night sweats [Recovering/Resolving]

NARRATIVE: CASE EVENT DATE: 20191209
